FAERS Safety Report 15409582 (Version 5)
Quarter: 2019Q4

REPORT INFORMATION
  Report Type: Report from Study
  Country: US (occurrence: US)
  Receive Date: 20180920
  Receipt Date: 20191216
  Transmission Date: 20200122
  Serious: Yes (Death, Hospitalization)
  Sender: FDA-Public Use
  Company Number: US-ACTELION-A-US2016-141167

PATIENT
  Age: 13 Year
  Sex: Male
  Weight: 59.86 kg

DRUGS (4)
  1. SILDENAFIL. [Concomitant]
     Active Substance: SILDENAFIL
  2. OPSUMIT [Suspect]
     Active Substance: MACITENTAN
     Indication: PULMONARY ARTERIAL HYPERTENSION
     Dosage: 10 MG, QD
     Route: 048
     Dates: start: 20160502
  3. OPSUMIT [Suspect]
     Active Substance: MACITENTAN
     Dosage: 10 MG, QD
     Route: 048
  4. REMODULIN [Concomitant]
     Active Substance: TREPROSTINIL
     Route: 058

REACTIONS (28)
  - Migraine [Unknown]
  - Pyrexia [Unknown]
  - Infusion site warmth [Unknown]
  - Infusion site scab [Unknown]
  - Injection site pain [Unknown]
  - Infusion site infection [Unknown]
  - Secretion discharge [Unknown]
  - Infusion site rash [Unknown]
  - Sinusitis [Unknown]
  - Injection site haemorrhage [Unknown]
  - Pulmonary hypertension [Fatal]
  - Anxiety [Unknown]
  - Therapeutic procedure [Unknown]
  - Feeling hot [Recovered/Resolved]
  - Vomiting [Recovered/Resolved]
  - Surgical vascular shunt [Recovered/Resolved]
  - Infusion site vesicles [Unknown]
  - Infusion site discharge [Unknown]
  - Erythema [Unknown]
  - Pruritus [Unknown]
  - Infusion site inflammation [Unknown]
  - Infusion site haemorrhage [Unknown]
  - Malaise [Recovered/Resolved]
  - Renal function test [Recovered/Resolved]
  - Infusion site erythema [Unknown]
  - Terminal state [Unknown]
  - Diarrhoea [Recovered/Resolved]
  - Purulent discharge [Unknown]

NARRATIVE: CASE EVENT DATE: 201802
